FAERS Safety Report 25534858 (Version 5)
Quarter: 2025Q4

REPORT INFORMATION
  Report Type: Spontaneous
  Country: US (occurrence: US)
  Receive Date: 20250709
  Receipt Date: 20251002
  Transmission Date: 20260118
  Serious: No
  Sender: PFIZER
  Company Number: US-PFIZER INC-202500132668

PATIENT
  Age: 48 Year
  Sex: Male

DRUGS (3)
  1. GENOTROPIN [Suspect]
     Active Substance: SOMATROPIN
     Indication: Craniocerebral injury
     Dosage: 0.6 MG DAILY (.6 A DAY, UNITS UNKNOWN, 6 CLICKS IS WHAT IT READS ON SCREEN)
  2. GENOTROPIN [Suspect]
     Active Substance: SOMATROPIN
     Indication: Growth hormone deficiency
  3. CLOMID [Concomitant]
     Active Substance: CLOMIPHENE CITRATE
     Indication: Hormone level abnormal
     Dosage: UNK

REACTIONS (7)
  - Expired device used [Unknown]
  - Device information output issue [Unknown]
  - Device physical property issue [Unknown]
  - Product identification number issue [Unknown]
  - Device mechanical issue [Unknown]
  - Device connection issue [Unknown]
  - Device defective [Unknown]

NARRATIVE: CASE EVENT DATE: 20250101
